FAERS Safety Report 12566722 (Version 1)
Quarter: 2016Q3

REPORT INFORMATION
  Report Type: Spontaneous
  Country: FR (occurrence: FR)
  Receive Date: 20160718
  Receipt Date: 20160718
  Transmission Date: 20161109
  Serious: Yes (Other)
  Sender: FDA-Public Use
  Company Number: FR-SA-2016SA128475

PATIENT
  Age: 95 Year
  Sex: Female
  Weight: 70 kg

DRUGS (9)
  1. INEXIUM [Suspect]
     Active Substance: ESOMEPRAZOLE
     Route: 048
     Dates: start: 20160614
  2. OXYNORM [Suspect]
     Active Substance: OXYCODONE HYDROCHLORIDE
     Indication: PAIN
     Route: 048
     Dates: start: 20160624, end: 20160626
  3. LASILIX [Suspect]
     Active Substance: FUROSEMIDE
     Indication: URINARY RETENTION
     Route: 048
  4. LOVENOX [Suspect]
     Active Substance: ENOXAPARIN SODIUM
     Indication: COAGULOPATHY
     Route: 058
     Dates: start: 20160615
  5. PARACETAMOL SANOFI-SYNTHELABO OTC [Suspect]
     Active Substance: ACETAMINOPHEN
     Indication: PAIN
     Route: 048
     Dates: start: 20160615, end: 20160625
  6. LANSOYL [Concomitant]
     Active Substance: MINERAL OIL
     Indication: CONSTIPATION
     Route: 048
     Dates: start: 20160620
  7. LASILIX [Suspect]
     Active Substance: FUROSEMIDE
     Indication: URINARY RETENTION
     Route: 048
     Dates: start: 20160622, end: 20160627
  8. HYDROXYZINE [Suspect]
     Active Substance: HYDROXYZINE\HYDROXYZINE HYDROCHLORIDE
     Indication: ANXIETY
     Route: 048
     Dates: start: 20160620
  9. ZAMUDOL [Suspect]
     Active Substance: TRAMADOL HYDROCHLORIDE
     Indication: PAIN
     Route: 048
     Dates: start: 20160622, end: 20160628

REACTIONS (2)
  - Hepatocellular injury [Recovering/Resolving]
  - Cholestasis [Recovering/Resolving]

NARRATIVE: CASE EVENT DATE: 20160624
